FAERS Safety Report 6699257-6 (Version None)
Quarter: 2010Q2

REPORT INFORMATION
  Report Type: 
  Country: None (occurrence: None)
  Receive Date: 20100427
  Receipt Date: 20100413
  Transmission Date: 20101027
  Serious: Yes (Hospitalization, Other)
  Sender: FDA-Public Use
  Company Number: US-ELI_LILLY_AND_COMPANY-US201002002039

PATIENT
  Sex: Female

DRUGS (8)
  1. FORTEO [Suspect]
     Indication: OSTEOPOROSIS
     Dosage: 20 UG, DAILY (1/D)
     Dates: start: 20090801
  2. DILAUDID [Concomitant]
     Dosage: UNK, 3/D
  3. METHADONE HCL [Concomitant]
  4. TRAZODONE HCL [Concomitant]
  5. DILANTIN [Concomitant]
  6. SYNTHROID [Concomitant]
  7. XANAX [Concomitant]
  8. RITALIN [Concomitant]

REACTIONS (3)
  - MAMMOPLASTY [None]
  - PROCEDURAL PAIN [None]
  - SKIN DISORDER [None]
